FAERS Safety Report 8139659-4 (Version None)
Quarter: 2012Q1

REPORT INFORMATION
  Report Type: 
  Country: None (occurrence: None)
  Receive Date: 20120215
  Receipt Date: 20120214
  Transmission Date: 20120608
  Serious: Yes (Other)
  Sender: FDA-Public Use
  Company Number: BR-PFIZER INC-2010157698

PATIENT
  Age: 43 Year
  Sex: Female
  Weight: 105 kg

DRUGS (5)
  1. DORIXINA RELAX [Concomitant]
  2. LYRICA [Suspect]
     Indication: FIBROMYALGIA
     Dosage: 75 MG, 1X/DAY
     Route: 048
     Dates: start: 20100101, end: 20100101
  3. LYRICA [Suspect]
     Indication: MUSCLE FATIGUE
     Dosage: 75 MG, 2X/DAY
     Route: 048
     Dates: start: 20100101, end: 20100101
  4. YAZ [Concomitant]
     Indication: MENSTRUAL CYCLE MANAGEMENT
     Dosage: UNK
     Dates: start: 20050101
  5. PANTOPRAZOLE [Concomitant]
     Indication: PROPHYLAXIS
     Dosage: 20 MG

REACTIONS (27)
  - ANXIETY [None]
  - DEPRESSED MOOD [None]
  - MUSCULAR WEAKNESS [None]
  - FLUID RETENTION [None]
  - MEMORY IMPAIRMENT [None]
  - LETHARGY [None]
  - WEIGHT INCREASED [None]
  - FATIGUE [None]
  - PANIC REACTION [None]
  - ABDOMINAL DISTENSION [None]
  - FIBROMYALGIA [None]
  - PAIN [None]
  - BACK PAIN [None]
  - BREAST SWELLING [None]
  - DYSGEUSIA [None]
  - HYPERHIDROSIS [None]
  - NERVOUSNESS [None]
  - LOSS OF CONSCIOUSNESS [None]
  - RHINITIS [None]
  - APATHY [None]
  - CRYING [None]
  - DYSPNOEA [None]
  - OEDEMA PERIPHERAL [None]
  - THIRST [None]
  - MYALGIA [None]
  - BREAST ENLARGEMENT [None]
  - SWELLING [None]
